FAERS Safety Report 22111666 (Version 4)
Quarter: 2023Q2

REPORT INFORMATION
  Report Type: Spontaneous
  Country: US (occurrence: US)
  Receive Date: 20230318
  Receipt Date: 20230424
  Transmission Date: 20230722
  Serious: No
  Sender: FDA-Public Use
  Company Number: US-AMGEN-USASP2023035007

PATIENT
  Age: 79 Year
  Sex: Female

DRUGS (6)
  1. REPATHA [Suspect]
     Active Substance: EVOLOCUMAB
     Indication: Blood cholesterol abnormal
     Dosage: 140 MILLIGRAM, Q2WK
     Route: 058
     Dates: start: 2021
  2. REPATHA [Suspect]
     Active Substance: EVOLOCUMAB
     Dosage: UNK UNK, Q2WK
     Route: 058
  3. REPATHA [Suspect]
     Active Substance: EVOLOCUMAB
     Dosage: UNK UNK, Q2WK
     Route: 058
  4. REPATHA [Suspect]
     Active Substance: EVOLOCUMAB
     Dosage: UNK UNK, Q2WK
     Route: 058
  5. REPATHA [Suspect]
     Active Substance: EVOLOCUMAB
     Dosage: UNK UNK, Q2WK
     Route: 058
  6. REPATHA [Suspect]
     Active Substance: EVOLOCUMAB
     Dosage: UNK UNK, Q2WK
     Route: 058

REACTIONS (3)
  - Drug dose omission by device [Unknown]
  - Device difficult to use [Unknown]
  - Wrong technique in product usage process [Unknown]
